FAERS Safety Report 8100208-8 (Version None)
Quarter: 2012Q1

REPORT INFORMATION
  Report Type: 
  Country: None (occurrence: None)
  Receive Date: 20120129
  Receipt Date: 20111202
  Transmission Date: 20120608
  Serious: No
  Sender: FDA-Public Use
  Company Number: US-ABBOTT-11P-163-0852438-00

PATIENT
  Sex: Female

DRUGS (6)
  1. PROBIOTICS [Concomitant]
     Indication: PRODUCT USED FOR UNKNOWN INDICATION
  2. BONE DEFENCE [Concomitant]
     Indication: PRODUCT USED FOR UNKNOWN INDICATION
  3. VITAMIN B-12 [Concomitant]
     Indication: PRODUCT USED FOR UNKNOWN INDICATION
  4. ALENDRONATE SODIUM [Concomitant]
     Indication: OSTEOPOROSIS PROPHYLAXIS
     Dates: start: 20110804
  5. VITAMIN TAB [Concomitant]
     Indication: PRODUCT USED FOR UNKNOWN INDICATION
  6. HUMIRA [Suspect]
     Indication: CROHN'S DISEASE
     Dosage: INJECT UNDER THE SKIN
     Dates: start: 20110804

REACTIONS (31)
  - HYPOAESTHESIA [None]
  - PRURITUS [None]
  - INJECTION SITE PAIN [None]
  - EAR PAIN [None]
  - PAIN [None]
  - PAIN IN EXTREMITY [None]
  - MEMORY IMPAIRMENT [None]
  - EAR DISCOMFORT [None]
  - MUSCULOSKELETAL DISCOMFORT [None]
  - FEELING ABNORMAL [None]
  - INJECTION SITE ERYTHEMA [None]
  - NECK PAIN [None]
  - HEAD DISCOMFORT [None]
  - VISUAL IMPAIRMENT [None]
  - ASTHENOPIA [None]
  - PRURITUS GENERALISED [None]
  - NECK INJURY [None]
  - HEADACHE [None]
  - INJECTION SITE PRURITUS [None]
  - ANXIETY [None]
  - EYE PAIN [None]
  - GAIT DISTURBANCE [None]
  - GINGIVAL PAIN [None]
  - CHEST PAIN [None]
  - NAUSEA [None]
  - ABNORMAL SENSATION IN EYE [None]
  - ARTHRALGIA [None]
  - OROPHARYNGEAL PAIN [None]
  - ABDOMINAL DISCOMFORT [None]
  - OEDEMA PERIPHERAL [None]
  - DISTURBANCE IN ATTENTION [None]
